FAERS Safety Report 21018277 (Version 1)
Quarter: 2022Q2

REPORT INFORMATION
  Report Type: Spontaneous
  Country: US (occurrence: None)
  Receive Date: 20220628
  Receipt Date: 20220628
  Transmission Date: 20220721
  Serious: Yes (Disabling)
  Sender: FDA-Public Use
  Company Number: None

PATIENT
  Age: 60 Year
  Sex: Male
  Weight: 112.5 kg

DRUGS (1)
  1. ROSUVASTATIN [Suspect]
     Active Substance: ROSUVASTATIN
     Indication: Blood cholesterol
     Dosage: OTHER QUANTITY : 1 TABLET(S);?FREQUENCY : AT BEDTIME;?
     Route: 048

REACTIONS (10)
  - Myalgia [None]
  - Muscular weakness [None]
  - Back pain [None]
  - Muscle spasms [None]
  - Arthralgia [None]
  - Amnesia [None]
  - Confusional state [None]
  - Drug intolerance [None]
  - Fine motor skill dysfunction [None]
  - Tremor [None]

NARRATIVE: CASE EVENT DATE: 20210910
